FAERS Safety Report 10242998 (Version 1)
Quarter: 2014Q2

REPORT INFORMATION
  Report Type: Spontaneous
  Country: FR (occurrence: FR)
  Receive Date: 20140618
  Receipt Date: 20140618
  Transmission Date: 20141212
  Serious: Yes (Hospitalization, Other)
  Sender: FDA-Public Use
  Company Number: FR-AMGEN INC.-FRASP2014044713

PATIENT
  Age: 46 Year
  Sex: Male

DRUGS (1)
  1. ENBREL [Suspect]
     Indication: ANKYLOSING SPONDYLITIS
     Dosage: 50 MG, TWICE A MONTH
     Route: 065
     Dates: start: 2007

REACTIONS (4)
  - Encephalitis [Recovered/Resolved with Sequelae]
  - Coma [Unknown]
  - Paraparesis [Unknown]
  - Anal sphincter atony [Unknown]
